FAERS Safety Report 15300943 (Version 1)
Quarter: 2018Q3

REPORT INFORMATION
  Report Type: Spontaneous
  Country: US (occurrence: US)
  Receive Date: 20180809
  Receipt Date: 20180809
  Transmission Date: 20181010
  Serious: No
  Sender: FDA-Public Use
  Company Number: None

PATIENT
  Age: 19 Year
  Sex: Female
  Weight: 76.05 kg

DRUGS (11)
  1. BUPROPION XL 300MG [Concomitant]
     Active Substance: BUPROPION
     Dates: start: 20180626
  2. CALCIUM CARBONATE 500MG CHEW [Concomitant]
     Dates: start: 20180629
  3. RANITIDINE 75MG [Concomitant]
     Dates: start: 20180626
  4. VITAMIN D?3 2,000 [Concomitant]
     Dates: start: 20180626
  5. ENALAPRIL 2.5MG [Concomitant]
     Dates: start: 20180626
  6. OMEPRAZOLE 20MG [Concomitant]
     Active Substance: OMEPRAZOLE
     Dates: start: 20180626
  7. NICOTINE 14MG/DAY PATCH [Concomitant]
     Dates: start: 20180705
  8. OXCARBAZEPINE. [Suspect]
     Active Substance: OXCARBAZEPINE
     Indication: AFFECTIVE DISORDER
     Route: 048
     Dates: start: 20180706, end: 20180716
  9. ARIPIPRAZOLE 300MG IM  MONTHLY [Concomitant]
     Dates: start: 20180627
  10. FERROUS SULFATE 325MG [Concomitant]
     Active Substance: FERROUS SULFATE
     Dates: start: 20180627
  11. DOCUSATE SODIUM. [Concomitant]
     Active Substance: DOCUSATE SODIUM
     Dates: start: 20180626

REACTIONS (1)
  - Adverse drug reaction [None]

NARRATIVE: CASE EVENT DATE: 20180716
